FAERS Safety Report 6959385-4 (Version None)
Quarter: 2010Q3

REPORT INFORMATION
  Report Type: 
  Country: None (occurrence: None)
  Receive Date: 20100831
  Receipt Date: 20100831
  Transmission Date: 20110219
  Serious: Yes (Hospitalization)
  Sender: FDA-Public Use
  Company Number: None

PATIENT
  Age: 78 Year
  Sex: Male
  Weight: 88 kg

DRUGS (3)
  1. METOPROLOL TARTRATE [Suspect]
     Indication: ATRIAL FIBRILLATION
     Dosage: 12.5 MG BID PO
     Route: 048
     Dates: start: 20060303, end: 20100727
  2. METOPROLOL TARTRATE [Suspect]
     Indication: HYPERTENSION
     Dosage: 12.5 MG BID PO
     Route: 048
     Dates: start: 20060303, end: 20100727
  3. METOPROLOL TARTRATE [Suspect]
     Indication: MITRAL VALVE REPLACEMENT
     Dosage: 12.5 MG BID PO
     Route: 048
     Dates: start: 20060303, end: 20100727

REACTIONS (2)
  - BRADYCARDIA [None]
  - DIZZINESS [None]
